FAERS Safety Report 21273246 (Version 2)
Quarter: 2022Q4

REPORT INFORMATION
  Report Type: Spontaneous
  Country: BR (occurrence: BR)
  Receive Date: 20220831
  Receipt Date: 20221007
  Transmission Date: 20230112
  Serious: Yes (Other)
  Sender: FDA-Public Use
  Company Number: BR-PFIZER INC-202201091292

PATIENT
  Age: 80 Year
  Sex: Female
  Weight: 58 kg

DRUGS (5)
  1. ENBREL [Suspect]
     Active Substance: ETANERCEPT
     Indication: Rheumatoid arthritis
     Dosage: UNK, WEEKLY (1 APPLICATION/WEEK)
     Route: 065
     Dates: start: 20210325
  2. HYDRALAZINE HYDROCHLORIDE [Concomitant]
     Active Substance: HYDRALAZINE HYDROCHLORIDE
     Indication: Hypertension
     Dosage: UNK, 3X/DAY
  3. RIVOTRIL [Concomitant]
     Active Substance: CLONAZEPAM
     Indication: Depression
     Dosage: UNK, 3X/DAY
  4. ZOLPIDEM [Concomitant]
     Active Substance: ZOLPIDEM TARTRATE
     Indication: Depression
     Dosage: 2 DF
  5. BENSERAZIDE\LEVODOPA [Concomitant]
     Active Substance: BENSERAZIDE\LEVODOPA
     Indication: Parkinson^s disease
     Dosage: 250 MG, 2X/DAY

REACTIONS (9)
  - Parkinson^s disease [Unknown]
  - Needle issue [Unknown]
  - Device issue [Unknown]
  - Device difficult to use [Unknown]
  - Injection site discolouration [Unknown]
  - Drug dose omission by device [Unknown]
  - Arthritis [Unknown]
  - Depression [Unknown]
  - Hypertension [Unknown]
